FAERS Safety Report 7414356-9 (Version None)
Quarter: 2011Q2

REPORT INFORMATION
  Report Type: 
  Country: None (occurrence: None)
  Receive Date: 20110411
  Receipt Date: 20110411
  Transmission Date: 20111010
  Serious: Yes (Other)
  Sender: FDA-Public Use
  Company Number: None

PATIENT
  Age: 72 Year
  Sex: Male
  Weight: 75 kg

DRUGS (1)
  1. ETANERCEPT [Suspect]
     Indication: RHEUMATOID ARTHRITIS
     Dosage: 50MG QWEEK SQ
     Route: 058
     Dates: start: 20110228, end: 20110408

REACTIONS (3)
  - ARTHRALGIA [None]
  - FEELING ABNORMAL [None]
  - MYALGIA [None]
